FAERS Safety Report 6639660-3 (Version None)
Quarter: 2010Q1

REPORT INFORMATION
  Report Type: 
  Country: None (occurrence: None)
  Receive Date: 20100315
  Receipt Date: 20100302
  Transmission Date: 20100710
  Serious: Yes (Hospitalization)
  Sender: FDA-Public Use
  Company Number: 008283

PATIENT
  Sex: Male
  Weight: 110.5 kg

DRUGS (2)
  1. LACOSAMIDE [Suspect]
     Indication: EPILEPSY
     Dosage: 100 MG BID ORAL
     Route: 048
     Dates: start: 20090709
  2. LEVETIRACETAM [Concomitant]

REACTIONS (1)
  - COMPLEX PARTIAL SEIZURES [None]
